FAERS Safety Report 22347549 (Version 2)
Quarter: 2023Q2

REPORT INFORMATION
  Report Type: Report from Study
  Country: DE (occurrence: DE)
  Receive Date: 20230522
  Receipt Date: 20230612
  Transmission Date: 20230721
  Serious: Yes (Death)
  Sender: FDA-Public Use
  Company Number: DE-002147023-NVSC2023DE115455

PATIENT
  Age: 53 Year
  Sex: Female

DRUGS (2)
  1. FEMARA [Suspect]
     Active Substance: LETROZOLE
     Indication: Breast cancer
     Dosage: 2.5 MG, QD
     Route: 048
     Dates: start: 20210329
  2. PALBOCICLIB [Suspect]
     Active Substance: PALBOCICLIB
     Indication: Breast cancer
     Dosage: 125 MG, CYCLIC (DAY 1 TO DAY 21 EVERY 28-DAY)
     Route: 048
     Dates: start: 20210329

REACTIONS (1)
  - Clinical death [Fatal]

NARRATIVE: CASE EVENT DATE: 20211009
